FAERS Safety Report 9015718 (Version 1)
Quarter: 2013Q1

REPORT INFORMATION
  Report Type: Spontaneous
  Country: TH (occurrence: None)
  Receive Date: 20130102
  Receipt Date: 20130102
  Transmission Date: 20140127
  Serious: Yes (Other)
  Sender: FDA-Public Use
  Company Number: 2012P1067955

PATIENT
  Age: 42 Year
  Sex: Male

DRUGS (3)
  1. ATENOLOL [Suspect]
     Indication: HYPERTENSION
  2. CHLORHEXIDINE MOUTHWASH [Concomitant]
  3. ENALAPRIL [Concomitant]

REACTIONS (1)
  - Pemphigoid [None]
